FAERS Safety Report 19519903 (Version 2)
Quarter: 2021Q3

REPORT INFORMATION
  Report Type: Spontaneous
  Country: GB (occurrence: GB)
  Receive Date: 20210712
  Receipt Date: 20210723
  Transmission Date: 20211014
  Serious: Yes (Hospitalization)
  Sender: FDA-Public Use
  Company Number: GB-MYLANLABS-2021M1040936

PATIENT
  Sex: Male

DRUGS (2)
  1. CLOZARIL [Suspect]
     Active Substance: CLOZAPINE
     Dosage: 275 MILLIGRAM
     Route: 048
     Dates: start: 20010701, end: 20210706
  2. CLOZARIL [Suspect]
     Active Substance: CLOZAPINE
     Indication: SCHIZOPHRENIA
     Dosage: 100 MILLIGRAM
     Route: 048
     Dates: start: 20010701, end: 20210706

REACTIONS (4)
  - Anal incontinence [Recovered/Resolved]
  - Constipation [Recovering/Resolving]
  - Product label confusion [Recovering/Resolving]
  - Presyncope [Recovered/Resolved]
